FAERS Safety Report 4952344-2 (Version None)
Quarter: 2006Q1

REPORT INFORMATION
  Report Type: 
  Country: None (occurrence: None)
  Receive Date: 20060131
  Receipt Date: 20050712
  Transmission Date: 20060701
  Serious: Yes (Hospitalization)
  Sender: FDA-Public Use
  Company Number: WAES  0507USA01810

PATIENT
  Age: 58 Year
  Sex: Female
  Weight: 74.3899 kg

DRUGS (9)
  1. INVANZ [Suspect]
     Indication: GANGRENE
     Dosage: 500 MG DAILY IV
     Route: 042
     Dates: start: 20050706, end: 20050719
  2. LORTAB [Suspect]
     Dosage: 60 MG PO
     Route: 048
     Dates: start: 20050701
  3. ACCUPRIL [Concomitant]
  4. COREG [Concomitant]
  5. LEXAPRO [Concomitant]
  6. NEPHROCAPS [Concomitant]
  7. NITRO-BID [Concomitant]
  8. INSULIN [Concomitant]
  9. TRAZODONE HCL [Concomitant]

REACTIONS (1)
  - HALLUCINATION [None]
